FAERS Safety Report 19477027 (Version 1)
Quarter: 2021Q2

REPORT INFORMATION
  Report Type: Spontaneous
  Country: NL (occurrence: NL)
  Receive Date: 20210630
  Receipt Date: 20210630
  Transmission Date: 20210717
  Serious: Yes (Hospitalization, Other)
  Sender: FDA-Public Use
  Company Number: NL-ACCORD-229827

PATIENT
  Age: 64 Year
  Sex: Male
  Weight: 80 kg

DRUGS (20)
  1. ESOMEPRAZOLE/ESOMEPRAZOLE MAGNESIUM/ESOMEPRAZOLE SODIUM [Concomitant]
     Active Substance: ESOMEPRAZOLE
     Dosage: 40 MG
  2. FOLIC ACID. [Concomitant]
     Active Substance: FOLIC ACID
     Dosage: 5 MG
  3. METHOTREXATE. [Suspect]
     Active Substance: METHOTREXATE
     Indication: SARCOIDOSIS
     Dosage: STRENGTH:2.5MG, 2 PIECES EVERY FRIDAY
     Dates: start: 20210115
  4. SUCRALFATE. [Concomitant]
     Active Substance: SUCRALFATE
     Dosage: 1 G
  5. BUPRENORPHINE. [Concomitant]
     Active Substance: BUPRENORPHINE
     Dosage: 5 MCG PER HOUR
  6. PREGABALIN. [Concomitant]
     Active Substance: PREGABALIN
     Dosage: 75 MG
  7. ASTRAZENECA COVID?19 VACCINE [Suspect]
     Active Substance: AZD-1222
     Indication: COVID-19 IMMUNISATION
     Dates: start: 20210503
  8. MESALAZINE [Concomitant]
     Active Substance: MESALAMINE
     Dosage: 500 MG
  9. CARBOMER [Concomitant]
     Active Substance: CARBOMER
     Dosage: 3 MG/G
  10. BUDESONIDE/FORMOTEROL FUMARATE [Concomitant]
     Active Substance: BUDESONIDE\FORMOTEROL FUMARATE
     Dosage: AEROSOL, 200/6 MCG/DOSE
  11. ISOSORBIDE DINITRATE VASELINE CREAM [Concomitant]
     Dosage: 10 MG/G
  12. AMLODIPINE [Concomitant]
     Active Substance: AMLODIPINE BESYLATE
     Dosage: 5 MG
  13. PREDNISOLONE. [Suspect]
     Active Substance: PREDNISOLONE
     Indication: SARCOIDOSIS
     Dosage: STRENGTH:5MG, 1 DD 1 PIECE
     Dates: start: 20210113
  14. ADROVANCE [Concomitant]
     Active Substance: ALENDRONATE SODIUM\CHOLECALCIFEROL
     Dosage: 70 MG /2800 UNITS
  15. BUPRENORPHINE. [Concomitant]
     Active Substance: BUPRENORPHINE
     Dosage: 20 MCG PER HOUR
  16. IPRATROPIUM [Concomitant]
     Active Substance: IPRATROPIUM
     Dosage: AEROSOL, 20 MCG/DOSE
  17. BACLOFEN. [Concomitant]
     Active Substance: BACLOFEN
     Dosage: 10 MG
  18. PAROXETINE. [Concomitant]
     Active Substance: PAROXETINE
     Dosage: 20 MG
  19. ASCAL BRISPER [Concomitant]
     Active Substance: CARBASPIRIN
     Dosage: 38 MG
  20. LISINOPRIL. [Concomitant]
     Active Substance: LISINOPRIL
     Dosage: 10 MG

REACTIONS (1)
  - Pulmonary embolism [Not Recovered/Not Resolved]

NARRATIVE: CASE EVENT DATE: 20210517
